FAERS Safety Report 17763999 (Version 5)
Quarter: 2020Q3

REPORT INFORMATION
  Report Type: Report from Study
  Country: None (occurrence: CO)
  Receive Date: 20200510
  Receipt Date: 20200713
  Transmission Date: 20201102
  Serious: Yes (Hospitalization, Other)
  Sender: FDA-Public Use
  Company Number: CO-ABBVIE-20K-036-3393564-00

PATIENT
  Age: 47 Year
  Sex: Female

DRUGS (1)
  1. HUMIRA [Suspect]
     Active Substance: ADALIMUMAB
     Indication: HIDRADENITIS
     Route: 058
     Dates: start: 20190903, end: 20200411

REACTIONS (8)
  - Hidradenitis [Unknown]
  - Breast mass [Not Recovered/Not Resolved]
  - Depression [Recovered/Resolved]
  - Uterine leiomyoma [Recovered/Resolved]
  - Hidradenitis [Recovered/Resolved]
  - Wound infection bacterial [Recovered/Resolved]
  - Wound secretion [Recovered/Resolved]
  - Papule [Recovered/Resolved]

NARRATIVE: CASE EVENT DATE: 201912
